FAERS Safety Report 13534977 (Version 1)
Quarter: 2017Q2

REPORT INFORMATION
  Report Type: Spontaneous
  Country: PL (occurrence: PL)
  Receive Date: 20170511
  Receipt Date: 20170511
  Transmission Date: 20170830
  Serious: Yes (Hospitalization, Other)
  Sender: FDA-Public Use
  Company Number: PL-APOTEX-2017AP012044

PATIENT
  Age: 65 Year
  Sex: Male

DRUGS (2)
  1. MYCOFENOLATE MOFETIL APOTEX [Suspect]
     Active Substance: MYCOPHENOLATE MOFETIL
     Indication: IMMUNOSUPPRESSION
     Dosage: UNK
     Route: 065
  2. TACROLIMUS. [Suspect]
     Active Substance: TACROLIMUS
     Indication: IMMUNOSUPPRESSANT DRUG THERAPY
     Dosage: UNK
     Route: 065

REACTIONS (3)
  - Gastrointestinal fungal infection [Recovered/Resolved]
  - Testicular seminoma (pure) [Unknown]
  - Prostate cancer [Unknown]
